FAERS Safety Report 6924244-X (Version None)
Quarter: 2010Q3

REPORT INFORMATION
  Report Type: 
  Country: None (occurrence: None)
  Receive Date: 20100811
  Receipt Date: 20100811
  Transmission Date: 20110219
  Serious: Yes (Hospitalization)
  Sender: FDA-Public Use
  Company Number: None

PATIENT
  Sex: Female
  Weight: 115.2 kg

DRUGS (6)
  1. TAXOL [Suspect]
     Dosage: 350 MG
     Dates: end: 20100721
  2. TOPOTECAN [Suspect]
     Dosage: 1.5 MG
     Dates: end: 20100723
  3. LEVOTHYROXINE SODIUM [Concomitant]
  4. LISINOPRIL [Concomitant]
  5. PREMPRO [Concomitant]
  6. VITAMIN D [Concomitant]

REACTIONS (2)
  - BODY TEMPERATURE INCREASED [None]
  - WHITE BLOOD CELL COUNT DECREASED [None]
